FAERS Safety Report 5809768-0 (Version None)
Quarter: 2008Q3

REPORT INFORMATION
  Report Type: 
  Country: None (occurrence: None)
  Receive Date: 20080709
  Receipt Date: 20080624
  Transmission Date: 20090109
  Serious: Yes (Hospitalization)
  Sender: FDA-Public Use
  Company Number: ES-1166601

PATIENT
  Sex: Female

DRUGS (6)
  1. TRAVATAN [Suspect]
     Dosage: OPHTHALMIC
     Route: 047
     Dates: start: 20070901
  2. LEVOTHROID [Concomitant]
  3. EUTIROX (LEVOTHYROXINE SODIUM) [Concomitant]
  4. CALPRES (AMLODIPINE BESILATE) [Concomitant]
  5. LIPOLAC (CARBOMER) [Concomitant]
  6. ZAMENE (DEFLAZACORT) [Concomitant]

REACTIONS (20)
  - ANXIETY [None]
  - ARRHYTHMIA [None]
  - ASTHENIA [None]
  - BLOOD DISORDER [None]
  - BLOOD PRESSURE INCREASED [None]
  - BRADYCARDIA [None]
  - BREATH ODOUR [None]
  - CARDIAC FAILURE [None]
  - COUGH [None]
  - DEPRESSION [None]
  - DRUG INEFFECTIVE [None]
  - DYSGEUSIA [None]
  - DYSPHAGIA [None]
  - DYSPHONIA [None]
  - FATIGUE [None]
  - HYPERTENSION [None]
  - HYPOTENSION [None]
  - MONOCYTOSIS [None]
  - PIGMENTATION DISORDER [None]
  - PULMONARY FIBROSIS [None]
